FAERS Safety Report 7869990-9 (Version None)
Quarter: 2011Q4

REPORT INFORMATION
  Report Type: 
  Country: None (occurrence: None)
  Receive Date: 20111028
  Receipt Date: 20110111
  Transmission Date: 20120403
  Serious: No
  Sender: FDA-Public Use
  Company Number: US-AMGEN-USASP2011001939

PATIENT
  Age: 60 Year
  Sex: Female
  Weight: 90.703 kg

DRUGS (12)
  1. ENBREL [Suspect]
     Indication: RHEUMATOID ARTHRITIS
     Dosage: UNK
  2. GABAPENTIN [Concomitant]
     Dosage: 1200 MG, QD
  3. AMLODIPINE [Concomitant]
     Dosage: 10 MG, QD
  4. HYDROCHLOROTHIAZIDE [Concomitant]
     Dosage: 25 MG, QD
  5. HUMIRA [Concomitant]
     Indication: RHEUMATOID ARTHRITIS
     Dosage: 40 MG, UNK
     Route: 058
     Dates: start: 20111101
  6. ESTRADIOL [Concomitant]
     Dosage: 1 MG, QD
  7. CARISOPRODOL [Concomitant]
     Dosage: UNK
  8. CELECOXIB [Concomitant]
     Dosage: 200 MG, QD
  9. LORTAB [Concomitant]
     Dosage: UNK UNK, QD
  10. METHOTREXATE [Concomitant]
  11. BENAZEPRIL HYDROCHLORIDE [Concomitant]
     Dosage: 10 MG, QD
  12. CITALOPRAM HYDROBROMIDE [Concomitant]
     Dosage: 20 MG, QD

REACTIONS (7)
  - PAIN [None]
  - MALAISE [None]
  - NIGHT SWEATS [None]
  - ASTHENIA [None]
  - SINUSITIS [None]
  - RENAL PAIN [None]
  - RHINALGIA [None]
